FAERS Safety Report 4825661-4 (Version None)
Quarter: 2005Q4

REPORT INFORMATION
  Report Type: 
  Country: None (occurrence: None)
  Receive Date: 20051109
  Receipt Date: 20051101
  Transmission Date: 20060501
  Serious: Yes (Death)
  Sender: FDA-Public Use
  Company Number: 163-20785-05070435

PATIENT
  Age: 73 Year
  Sex: Male

DRUGS (1)
  1. THALOMID [Suspect]
     Indication: ACUTE LEUKAEMIA
     Dosage: 200 MG, QHS, ORAL
     Route: 048
     Dates: start: 20041020, end: 20050717

REACTIONS (2)
  - ACUTE LEUKAEMIA [None]
  - DISEASE PROGRESSION [None]
